FAERS Safety Report 6256784-3 (Version None)
Quarter: 2009Q3

REPORT INFORMATION
  Report Type: 
  Country: None (occurrence: None)
  Receive Date: 20090706
  Receipt Date: 20090702
  Transmission Date: 20100115
  Serious: No
  Sender: FDA-Public Use
  Company Number: US-B.I. PHARMACEUTICALS,INC./RIDGEFIELD-2002-BP-03805BP

PATIENT
  Age: 68 Year
  Sex: Male

DRUGS (7)
  1. FLOMAX [Suspect]
     Indication: BENIGN PROSTATIC HYPERPLASIA
     Dosage: 0.4 MG
     Route: 048
     Dates: start: 20010501
  2. VALIUM [Concomitant]
     Dosage: 5 MG
  3. PREVACID [Concomitant]
     Dosage: 30 MG
  4. COMBIVENT [Concomitant]
     Indication: CHRONIC OBSTRUCTIVE PULMONARY DISEASE
  5. COMBIVENT [Concomitant]
     Indication: EMPHYSEMA
  6. NEURONTIN [Concomitant]
     Indication: NEUROPATHY PERIPHERAL
  7. CELEBREX [Concomitant]

REACTIONS (5)
  - BRONCHITIS [None]
  - DYSURIA [None]
  - MICTURITION URGENCY [None]
  - NOCTURIA [None]
  - URINARY HESITATION [None]
